FAERS Safety Report 8958331 (Version 1)
Quarter: 2012Q4

REPORT INFORMATION
  Report Type: 
  Country: CH (occurrence: CH)
  Receive Date: 20121210
  Receipt Date: 20121210
  Transmission Date: 20130627
  Serious: Yes (Other)
  Sender: FDA-Public Use
  Company Number: CH-TEVA-199100003

PATIENT
  Age: 31 Year
  Sex: Male

DRUGS (3)
  1. IRFEN [Suspect]
     Indication: NECK PAIN
     Dosage: 800 to 1600 mg of ibuprofen daily
     Route: 048
     Dates: start: 19910528, end: 19911126
  2. BRUFEN [Suspect]
     Indication: NECK PAIN
     Dosage: 800 to 1600 mg of ibuprofen daily
     Dates: start: 19910528, end: 19911126
  3. ECOPROFEN [Suspect]
     Indication: NECK PAIN
     Dosage: 800 to 1600 mg of ibuprofen daily
     Dates: start: 19910528, end: 19911126

REACTIONS (1)
  - Athetosis [Not Recovered/Not Resolved]
